FAERS Safety Report 22027770 (Version 3)
Quarter: 2023Q2

REPORT INFORMATION
  Report Type: Report from Study
  Country: US (occurrence: US)
  Receive Date: 20230223
  Receipt Date: 20230607
  Transmission Date: 20230722
  Serious: Yes (Other)
  Sender: FDA-Public Use
  Company Number: US-ASTELLAS-2022US041878

PATIENT
  Sex: Male

DRUGS (3)
  1. ENZALUTAMIDE [Suspect]
     Active Substance: ENZALUTAMIDE
     Indication: Prostate cancer
     Route: 048
     Dates: start: 20161101
  2. ENZALUTAMIDE [Suspect]
     Active Substance: ENZALUTAMIDE
     Route: 048
     Dates: end: 20221219
  3. ENZALUTAMIDE [Suspect]
     Active Substance: ENZALUTAMIDE
     Indication: Prostate cancer
     Route: 048

REACTIONS (11)
  - Foreign body in throat [Unknown]
  - Burn oesophageal [Unknown]
  - Dysphonia [Unknown]
  - Oesophageal irritation [Unknown]
  - Chest discomfort [Unknown]
  - Dizziness [Unknown]
  - Fatigue [Unknown]
  - Dyspepsia [Unknown]
  - Gastrointestinal disorder [Unknown]
  - Gastrooesophageal reflux disease [Recovered/Resolved]
  - Product use complaint [Unknown]
